FAERS Safety Report 9994938 (Version 1)
Quarter: 2014Q1

REPORT INFORMATION
  Report Type: Spontaneous
  Country: GB (occurrence: GB)
  Receive Date: 20140311
  Receipt Date: 20140311
  Transmission Date: 20141002
  Serious: Yes (Other)
  Sender: FDA-Public Use
  Company Number: GB-JNJFOC-20140302740

PATIENT
  Sex: Female

DRUGS (2)
  1. CALPROFEN [Suspect]
     Route: 065
  2. CALPROFEN [Suspect]
     Indication: PRODUCT USED FOR UNKNOWN INDICATION
     Route: 065

REACTIONS (5)
  - Eye swelling [Unknown]
  - Swelling face [Unknown]
  - Swollen tongue [Unknown]
  - Hypersensitivity [Unknown]
  - Respiratory disorder [Unknown]
